FAERS Safety Report 23686567 (Version 1)
Quarter: 2024Q1

REPORT INFORMATION
  Report Type: Spontaneous
  Country: US (occurrence: None)
  Receive Date: 20240328
  Receipt Date: 20240328
  Transmission Date: 20240410
  Serious: Yes (Hospitalization)
  Sender: FDA-Public Use
  Company Number: None

PATIENT
  Age: 56 Year
  Sex: Female
  Weight: 90 kg

DRUGS (21)
  1. EMGALITY [Suspect]
     Active Substance: GALCANEZUMAB-GNLM
     Indication: Migraine
     Dosage: OTHER FREQUENCY : MONTHLY;?
     Route: 058
     Dates: start: 20240304
  2. LISINOPRIL [Concomitant]
     Active Substance: LISINOPRIL
  3. ADDERALL [Concomitant]
     Active Substance: AMPHETAMINE ASPARTATE\AMPHETAMINE SULFATE\DEXTROAMPHETAMINE SACCHARATE\DEXTROAMPHETAMINE SULFATE
  4. CAMBIA [Concomitant]
     Active Substance: DICLOFENAC POTASSIUM
  5. CLONAZEPAM [Concomitant]
     Active Substance: CLONAZEPAM
  6. LORAZEPAM [Concomitant]
     Active Substance: LORAZEPAM
  7. NORTRIPTYLINE [Concomitant]
     Active Substance: NORTRIPTYLINE
  8. PANTOPRAZOLE [Concomitant]
     Active Substance: PANTOPRAZOLE
  9. PREMARIN [Concomitant]
     Active Substance: ESTROGENS, CONJUGATED
  10. PROZAC [Concomitant]
     Active Substance: FLUOXETINE HYDROCHLORIDE
  11. SEROQUEL [Concomitant]
     Active Substance: QUETIAPINE FUMARATE
  12. VITAMIN D [Concomitant]
     Active Substance: VITAMIN D NOS
  13. DIAZEPAM [Concomitant]
     Active Substance: DIAZEPAM
  14. ALBUTEROL SULFATE [Concomitant]
     Active Substance: ALBUTEROL SULFATE
  15. VIRTUSSIN AC [Concomitant]
     Active Substance: CODEINE PHOSPHATE\GUAIFENESIN
  16. TIZANIDINE [Concomitant]
     Active Substance: TIZANIDINE
  17. LIDOCAINE [Concomitant]
     Active Substance: LIDOCAINE
  18. PHENERGAN [Concomitant]
     Active Substance: PROMETHAZINE HYDROCHLORIDE
  19. FLUCONAZOLE [Concomitant]
     Active Substance: FLUCONAZOLE
  20. DOXYCYCLINE [Concomitant]
     Active Substance: DOXYCYCLINE
  21. DEXTROAMPHETAMINE [Concomitant]
     Active Substance: DEXTROAMPHETAMINE

REACTIONS (3)
  - Hypotension [None]
  - Pain [None]
  - Pancreatitis [None]

NARRATIVE: CASE EVENT DATE: 20240326
